FAERS Safety Report 6560087-7 (Version None)
Quarter: 2010Q1

REPORT INFORMATION
  Report Type: 
  Country: None (occurrence: None)
  Receive Date: 20100129
  Receipt Date: 20090915
  Transmission Date: 20100710
  Serious: No
  Sender: FDA-Public Use
  Company Number: US-ABBOTT-09P-163-0597993-00

PATIENT
  Sex: Female
  Weight: 76.272 kg

DRUGS (3)
  1. HUMIRA [Suspect]
     Indication: ANKYLOSING SPONDYLITIS
     Dates: start: 20090501, end: 20090801
  2. HUMIRA [Suspect]
     Dates: start: 20090811
  3. ALEVE (CAPLET) [Concomitant]
     Indication: PAIN
     Dosage: AS REQUIRED

REACTIONS (2)
  - FATIGUE [None]
  - PAIN [None]
